FAERS Safety Report 24054990 (Version 4)
Quarter: 2024Q3

REPORT INFORMATION
  Report Type: Spontaneous
  Country: CO (occurrence: CO)
  Receive Date: 20240705
  Receipt Date: 20240827
  Transmission Date: 20241017
  Serious: Yes (Other)
  Sender: SANDOZ
  Company Number: CO-002147023-PHHY2019CO149343

PATIENT
  Sex: Female
  Weight: 46 kg

DRUGS (15)
  1. LEVOTHYROXINE SODIUM [Suspect]
     Active Substance: LEVOTHYROXINE SODIUM
     Indication: Hypothyroidism
     Dosage: 50 MG EVERY 12 HOURS
     Route: 048
     Dates: start: 2019
  2. LOSARTAN [Suspect]
     Active Substance: LOSARTAN\LOSARTAN POTASSIUM
     Dosage: 1 DOSAGE FORM, AT NIGHT
     Route: 065
     Dates: start: 2019
  3. LOSARTAN [Suspect]
     Active Substance: LOSARTAN\LOSARTAN POTASSIUM
     Indication: Product used for unknown indication
     Dosage: 50 MG, QD
     Route: 048
  4. LOSARTAN [Suspect]
     Active Substance: LOSARTAN\LOSARTAN POTASSIUM
     Dosage: 600 MG, QD
     Route: 048
     Dates: start: 20190621
  5. METFORMIN [Suspect]
     Active Substance: METFORMIN HYDROCHLORIDE
     Indication: Diabetes mellitus
     Dosage: 50 MG, EVERY 12 HOURS
     Route: 048
  6. ROSUVASTATIN [Suspect]
     Active Substance: ROSUVASTATIN\ROSUVASTATIN CALCIUM
     Indication: Blood cholesterol decreased
     Dosage: 40 MG, QD
     Route: 048
  7. TASIGNA [Suspect]
     Active Substance: NILOTINIB
     Dosage: 300 MG, Q12H
     Route: 048
     Dates: start: 20190615, end: 2024
  8. TASIGNA [Suspect]
     Active Substance: NILOTINIB
     Dosage: 150 MG, (120 CAPSULES)
     Route: 065
  9. TASIGNA [Suspect]
     Active Substance: NILOTINIB
     Dosage: 300 MG, Q12H
     Route: 048
     Dates: start: 20190615
  10. TASIGNA [Suspect]
     Active Substance: NILOTINIB
     Indication: Chronic myeloid leukaemia
     Dosage: 600 MG, QD
     Route: 048
     Dates: start: 20190621
  11. TASIGNA [Suspect]
     Active Substance: NILOTINIB
     Dosage: UNK (TABLET)
     Route: 048
  12. ALLOPURINOL [Concomitant]
     Active Substance: ALLOPURINOL
     Dosage: 150 MG, (120 CAPSULES)
     Route: 065
  13. ALLOPURINOL [Concomitant]
     Active Substance: ALLOPURINOL
     Indication: Product used for unknown indication
     Dosage: UNK
     Route: 065
  14. ATORVASTATIN [Concomitant]
     Active Substance: ATORVASTATIN
     Indication: Product used for unknown indication
     Dosage: UNK
     Route: 065
  15. LEVOTHYROXINE [Concomitant]
     Active Substance: LEVOTHYROXINE\LEVOTHYROXINE SODIUM
     Indication: Product used for unknown indication
     Dosage: UNK
     Route: 048

REACTIONS (17)
  - Neoplasm malignant [Unknown]
  - Blindness [Unknown]
  - Weight decreased [Unknown]
  - Weight increased [Unknown]
  - Nervous system disorder [Unknown]
  - Memory impairment [Not Recovered/Not Resolved]
  - Chronic myeloid leukaemia [Recovered/Resolved]
  - Alopecia [Unknown]
  - Eating disorder [Unknown]
  - Anxiety [Unknown]
  - Asthenia [Unknown]
  - Hypersensitivity [Unknown]
  - Headache [Unknown]
  - Fatigue [Unknown]
  - Illness [Unknown]
  - Product availability issue [Unknown]
  - Inappropriate schedule of product administration [Unknown]

NARRATIVE: CASE EVENT DATE: 20190101
